FAERS Safety Report 7290819-4 (Version None)
Quarter: 2011Q1

REPORT INFORMATION
  Report Type: 
  Country: None (occurrence: None)
  Receive Date: 20110214
  Receipt Date: 20110209
  Transmission Date: 20110831
  Serious: Yes (Death, Hospitalization)
  Sender: FDA-Public Use
  Company Number: CA-ASTRAZENECA-2011SE07585

PATIENT
  Age: 83 Year
  Sex: Female

DRUGS (3)
  1. DIOVAN [Concomitant]
     Indication: HYPERTENSION
  2. CRESTOR [Suspect]
     Indication: HYPERCHOLESTEROLAEMIA
     Route: 048
     Dates: start: 20070101
  3. TENORMIN [Concomitant]
     Indication: CARDIAC DISORDER
     Route: 048

REACTIONS (7)
  - RENAL DISORDER [None]
  - HEART RATE IRREGULAR [None]
  - CEREBROVASCULAR ACCIDENT [None]
  - HYPERTENSION [None]
  - ENCEPHALITIS [None]
  - ABDOMINAL DISCOMFORT [None]
  - MYOCARDIAL INFARCTION [None]
